FAERS Safety Report 8595436-1 (Version None)
Quarter: 2012Q3

REPORT INFORMATION
  Report Type: 
  Country: None (occurrence: None)
  Receive Date: 20120815
  Receipt Date: 20120716
  Transmission Date: 20120928
  Serious: No
  Sender: FDA-Public Use
  Company Number: US-BRISTOL-MYERS SQUIBB COMPANY-16770877

PATIENT
  Age: 58 Year
  Sex: Female

DRUGS (2)
  1. ONGLYZA [Suspect]
     Dosage: TAKING SINCE 4 TO 5 MONTHS, IN MORNING
  2. METFORMIN HYDROCHLORIDE [Concomitant]

REACTIONS (2)
  - HYPOAESTHESIA [None]
  - RHINORRHOEA [None]
